FAERS Safety Report 4659788-7 (Version None)
Quarter: 2005Q2

REPORT INFORMATION
  Report Type: 
  Country: None (occurrence: None)
  Receive Date: 20050510
  Receipt Date: 20050428
  Transmission Date: 20051028
  Serious: Yes (Hospitalization)
  Sender: FDA-Public Use
  Company Number: 214101

PATIENT
  Age: 71 Year
  Sex: Female
  Weight: 50.8 kg

DRUGS (2)
  1. AVASTIN [Suspect]
     Indication: PANCREATIC CARCINOMA
     Dosage: 10 MG
     Dates: start: 20050310, end: 20050425
  2. TAXOTERE [Suspect]
     Indication: NEUROENDOCRINE CARCINOMA
     Dosage: 35 MG
     Dates: start: 20050310, end: 20050414

REACTIONS (3)
  - BLOOD BILIRUBIN INCREASED [None]
  - SEPSIS [None]
  - WHITE BLOOD CELL COUNT INCREASED [None]
